FAERS Safety Report 17943729 (Version 2)
Quarter: 2020Q3

REPORT INFORMATION
  Report Type: Spontaneous
  Country: US (occurrence: US)
  Receive Date: 20200625
  Receipt Date: 20200731
  Transmission Date: 20201103
  Serious: No
  Sender: FDA-Public Use
  Company Number: US-AMGEN-USASP2020101524

PATIENT
  Sex: Male

DRUGS (2)
  1. OTEZLA [Suspect]
     Active Substance: APREMILAST
     Indication: PSORIATIC ARTHROPATHY
     Dosage: 30 MILLIGRAM, QD
     Route: 048
     Dates: start: 20200521, end: 2020
  2. OTEZLA [Suspect]
     Active Substance: APREMILAST
     Dosage: 20 MILLIGRAM, QD
     Route: 048
     Dates: start: 2020

REACTIONS (2)
  - Gastrointestinal disorder [Unknown]
  - Tachycardia [Recovered/Resolved]

NARRATIVE: CASE EVENT DATE: 2020
